FAERS Safety Report 9060853 (Version 2)
Quarter: 2013Q1

REPORT INFORMATION
  Report Type: Spontaneous
  Country: US (occurrence: US)
  Receive Date: 20130204
  Receipt Date: 20130325
  Transmission Date: 20140127
  Serious: Yes (Hospitalization)
  Sender: FDA-Public Use
  Company Number: US-JNJFOC-20130112527

PATIENT
  Sex: Male
  Weight: 113.4 kg

DRUGS (6)
  1. RISPERDAL [Suspect]
     Indication: NERVOUSNESS
     Route: 048
     Dates: start: 200602
  2. AMLODIPINE [Concomitant]
     Indication: PRODUCT USED FOR UNKNOWN INDICATION
     Route: 048
  3. LISINOPRIL [Concomitant]
     Indication: WEIGHT INCREASED
     Route: 065
  4. BABY ASPIRIN [Concomitant]
     Indication: HEART VALVE INCOMPETENCE
     Route: 065
  5. METOPROLOL [Concomitant]
     Indication: PRODUCT USED FOR UNKNOWN INDICATION
     Route: 065
  6. TAMSULOSIN [Concomitant]
     Indication: PRODUCT USED FOR UNKNOWN INDICATION
     Route: 065

REACTIONS (7)
  - Mania [Recovered/Resolved]
  - Heart valve incompetence [Unknown]
  - Polyp [Unknown]
  - Ulcer [Unknown]
  - Drug dose omission [Recovered/Resolved]
  - Weight increased [Not Recovered/Not Resolved]
  - Blood cholesterol increased [Not Recovered/Not Resolved]
